FAERS Safety Report 7477397-1 (Version None)
Quarter: 2011Q2

REPORT INFORMATION
  Report Type: 
  Country: None (occurrence: None)
  Receive Date: 20110513
  Receipt Date: 20110504
  Transmission Date: 20111010
  Serious: No
  Sender: FDA-Public Use
  Company Number: US-BIOGENIDEC-2011BI017014

PATIENT
  Age: 42 Year
  Sex: Female

DRUGS (1)
  1. TYSABRI [Suspect]
     Indication: MULTIPLE SCLEROSIS
     Route: 042
     Dates: start: 20080121

REACTIONS (5)
  - MUSCULAR WEAKNESS [None]
  - PERONEAL NERVE PALSY [None]
  - VERTIGO [None]
  - NASOPHARYNGITIS [None]
  - NASAL CONGESTION [None]
